FAERS Safety Report 8975971 (Version 3)
Quarter: 2013Q3

REPORT INFORMATION
  Report Type: Report from Study
  Country: TR (occurrence: TR)
  Receive Date: 20121219
  Receipt Date: 20130722
  Transmission Date: 20140515
  Serious: Yes (Hospitalization, Other)
  Sender: FDA-Public Use
  Company Number: TR-ROCHE-1151477

PATIENT
  Age: 50 Year
  Sex: Female
  Weight: 73 kg

DRUGS (18)
  1. TOCILIZUMAB [Suspect]
     Indication: RHEUMATOID ARTHRITIS
     Dosage: LAST DOSE PRIOR TO SAE: 08 NOV 2012
     Route: 042
     Dates: start: 20120621
  2. TOCILIZUMAB [Suspect]
     Route: 042
     Dates: start: 20120720
  3. TOCILIZUMAB [Suspect]
     Route: 042
     Dates: start: 20120817
  4. METHOTREXATE [Suspect]
     Indication: PRODUCT USED FOR UNKNOWN INDICATION
     Route: 048
     Dates: start: 20100105
  5. SULPHASALAZINE [Suspect]
     Indication: PRODUCT USED FOR UNKNOWN INDICATION
     Route: 048
     Dates: start: 20100105
  6. FOLIC ACID [Concomitant]
     Route: 065
     Dates: start: 20100105
  7. DICLOFENAC [Concomitant]
     Route: 048
     Dates: start: 20100105
  8. PANTOPRAZOL [Concomitant]
     Route: 065
     Dates: start: 20100105
  9. HYDROXYCHLOROQUINE [Concomitant]
     Route: 065
     Dates: start: 20100105
  10. PREDNISOLONE [Concomitant]
     Route: 065
     Dates: start: 20100105
  11. PLAQUENIL [Concomitant]
     Route: 048
     Dates: start: 20120105
  12. DELTACORTILEN [Concomitant]
     Route: 048
     Dates: start: 20121212
  13. DELTACORTILEN [Concomitant]
     Route: 065
     Dates: end: 20130411
  14. PROTONEXA [Concomitant]
     Route: 048
     Dates: start: 20120105
  15. FOLBIOL [Concomitant]
     Dosage: 5 MG/WEEK
     Route: 065
     Dates: start: 20120105
  16. VOLTAREN [Concomitant]
     Route: 065
     Dates: start: 20120105
  17. SALAZOPYRIN [Concomitant]
     Route: 065
     Dates: start: 20130105
  18. FERRO SANOL DUODENAL [Concomitant]
     Route: 065
     Dates: start: 20130425

REACTIONS (3)
  - Vasculitic rash [Recovered/Resolved]
  - Blood cholesterol increased [Recovered/Resolved]
  - Low density lipoprotein increased [Recovered/Resolved]
